FAERS Safety Report 6252354-1 (Version None)
Quarter: 2009Q2

REPORT INFORMATION
  Report Type: 
  Country: None (occurrence: None)
  Receive Date: 20090629
  Receipt Date: 20090629
  Transmission Date: 20091009
  Serious: No
  Sender: FDA-Public Use
  Company Number: None

PATIENT
  Age: 7 Year
  Sex: Male
  Weight: 24.4942 kg

DRUGS (1)
  1. ADDERALL XR 10 [Suspect]
     Indication: ATTENTION DEFICIT/HYPERACTIVITY DISORDER
     Dosage: ONE CAP Q DAY PO
     Route: 048
     Dates: start: 20090515, end: 20090615

REACTIONS (3)
  - ABNORMAL BEHAVIOUR [None]
  - FIGHT IN SCHOOL [None]
  - PRODUCT SUBSTITUTION ISSUE [None]
